FAERS Safety Report 8174157-3 (Version None)
Quarter: 2012Q1

REPORT INFORMATION
  Report Type: 
  Country: None (occurrence: None)
  Receive Date: 20120227
  Receipt Date: 20120213
  Transmission Date: 20120608
  Serious: Yes (Hospitalization, Other)
  Sender: FDA-Public Use
  Company Number: 1193646

PATIENT
  Age: 66 Year
  Sex: Female

DRUGS (10)
  1. LASIX [Concomitant]
  2. ZYRTEC [Concomitant]
  3. DEPO-MEDROL [Suspect]
     Indication: NECK PAIN
     Dosage: ONCE, INJECTION
     Dates: start: 20111221, end: 20111221
  4. DEPO-MEDROL [Suspect]
     Indication: BONE PAIN
     Dosage: ONCE, INJECTION
     Dates: start: 20111221, end: 20111221
  5. CARBOCAINE [Suspect]
     Indication: BONE PAIN
     Dosage: ONCE, INJECTION
     Dates: start: 20111221, end: 20111221
  6. CARBOCAINE [Suspect]
     Indication: NECK PAIN
     Dosage: ONCE, INJECTION
     Dates: start: 20111221, end: 20111221
  7. ATIVAN [Concomitant]
  8. BUPIVACAINE HCL [Suspect]
     Indication: NECK PAIN
     Dosage: INJECTION
     Dates: start: 20111221, end: 20111221
  9. BUPIVACAINE HCL [Suspect]
     Indication: BONE PAIN
     Dosage: INJECTION
     Dates: start: 20111221, end: 20111221
  10. VALIUM [Concomitant]

REACTIONS (2)
  - BLOOD POTASSIUM DECREASED [None]
  - HYPOPHAGIA [None]
